FAERS Safety Report 16700295 (Version 2)
Quarter: 2020Q1

REPORT INFORMATION
  Report Type: Spontaneous
  Country: CA (occurrence: CA)
  Receive Date: 20190814
  Receipt Date: 20200130
  Transmission Date: 20200409
  Serious: Yes (Other)
  Sender: FDA-Public Use
  Company Number: CA-AUROBINDO-AUR-APL-2019-046100

PATIENT
  Age: 52 Year
  Sex: Female

DRUGS (31)
  1. OMALIZUMAB. [Suspect]
     Active Substance: OMALIZUMAB
     Dosage: 375 MILLIGRAM (1 EVERY 2 WEEK)
     Route: 058
  2. XOLAIR [Suspect]
     Active Substance: OMALIZUMAB
     Dosage: UNK
     Route: 058
  3. ACLIDINIUM BROMIDE. [Concomitant]
     Active Substance: ACLIDINIUM BROMIDE
     Indication: ASTHMA
     Dosage: 1 DOSAGE FORM, TWO TIMES A DAY
  4. XOLAIR [Suspect]
     Active Substance: OMALIZUMAB
     Dosage: UNK
     Route: 058
  5. VALSARTAN AND HYDROCHLOROTHIAZIDE [Suspect]
     Active Substance: HYDROCHLOROTHIAZIDE\VALSARTAN
     Indication: HYPERTENSION
     Dosage: 1 DOSAGE FORM, ONCE A DAY
     Route: 048
  6. OMALIZUMAB. [Suspect]
     Active Substance: OMALIZUMAB
     Dosage: 375 MILLIGRAM (1 EVERY 2 WEEK)
     Route: 058
  7. OMALIZUMAB. [Suspect]
     Active Substance: OMALIZUMAB
     Dosage: 375 MILLIGRAM (1 EVERY 2 WEEK)
     Route: 058
  8. OMALIZUMAB. [Suspect]
     Active Substance: OMALIZUMAB
     Dosage: UNK
     Route: 058
  9. OMALIZUMAB. [Suspect]
     Active Substance: OMALIZUMAB
     Indication: ASTHMA
     Dosage: UNK
     Route: 058
  10. XOLAIR [Suspect]
     Active Substance: OMALIZUMAB
     Dosage: UNK
     Route: 058
  11. PREDNISONE. [Concomitant]
     Active Substance: PREDNISONE
     Indication: ASTHMA
     Dosage: 1 DOSAGE FORM, ONCE A DAY
     Route: 048
  12. ZENHALE [Concomitant]
     Active Substance: FORMOTEROL FUMARATE\MOMETASONE FUROATE
     Indication: ASTHMA
     Dosage: 2 DOSAGE FORM, TWO TIMES A DAY
  13. AMLODIPINE [Suspect]
     Active Substance: AMLODIPINE BESYLATE
     Indication: HYPERTENSION
     Dosage: 1 DOSAGE FORM, ONCE A DAY
     Route: 048
  14. XOLAIR [Suspect]
     Active Substance: OMALIZUMAB
     Dosage: UNK
     Route: 058
  15. OMALIZUMAB. [Suspect]
     Active Substance: OMALIZUMAB
     Dosage: 375 MILLIGRAM (1 EVERY 2 WEEK)
     Route: 058
  16. OMALIZUMAB. [Suspect]
     Active Substance: OMALIZUMAB
     Dosage: 375 MILLIGRAM (1 EVERY 2 WEEK)
     Route: 058
  17. OMALIZUMAB. [Suspect]
     Active Substance: OMALIZUMAB
     Dosage: UNK
     Route: 058
  18. OMALIZUMAB. [Suspect]
     Active Substance: OMALIZUMAB
     Dosage: UNK
     Route: 058
  19. REACTINE [Concomitant]
     Indication: RHINITIS ALLERGIC
     Dosage: 1 DOSAGE FORM, ONCE A DAY
     Route: 048
  20. VENTOLIN [Concomitant]
     Active Substance: ALBUTEROL SULFATE
     Indication: ASTHMA
     Dosage: 2 DOSAGE FORM
  21. XOLAIR [Suspect]
     Active Substance: OMALIZUMAB
     Indication: ASTHMA
     Dosage: UNK
     Route: 058
  22. XOLAIR [Suspect]
     Active Substance: OMALIZUMAB
     Dosage: 375 MILLIGRAM (1 EVERY 2 WEEK)
     Route: 058
  23. ELTROXIN [Concomitant]
     Active Substance: LEVOTHYROXINE
     Indication: HYPOTHYROIDISM
     Dosage: 1 DOSAGE FORM, ONCE A DAY
     Route: 048
  24. PULMICORT TURBUHALER [Concomitant]
     Active Substance: BUDESONIDE
     Indication: RHINITIS ALLERGIC
     Dosage: 1 DOSAGE FORM
  25. OMALIZUMAB. [Suspect]
     Active Substance: OMALIZUMAB
     Dosage: 375 MILLIGRAM (1 EVERY 2 WEEK)
     Route: 058
  26. OMALIZUMAB. [Suspect]
     Active Substance: OMALIZUMAB
     Dosage: UNK
     Route: 058
  27. OMALIZUMAB. [Suspect]
     Active Substance: OMALIZUMAB
     Dosage: 375 MILLIGRAM, 1 EVERY WEEK
     Route: 058
  28. XOLAIR [Suspect]
     Active Substance: OMALIZUMAB
     Dosage: 375 MILLIGRAM (1 EVERY 2 WEEK)
     Route: 058
  29. SINGULAIR [Concomitant]
     Active Substance: MONTELUKAST SODIUM
     Indication: ASTHMA
     Dosage: 1 DOSAGE FORM, ONCE A DAY
     Route: 048
  30. OMALIZUMAB. [Suspect]
     Active Substance: OMALIZUMAB
     Indication: ASTHMA
     Dosage: UNK
     Route: 058
  31. OMALIZUMAB. [Suspect]
     Active Substance: OMALIZUMAB
     Dosage: UNK
     Route: 058

REACTIONS (16)
  - Injection site pruritus [Recovered/Resolved]
  - Throat irritation [Recovered/Resolved]
  - Arthralgia [Recovered/Resolved]
  - Hepatic steatosis [Recovered/Resolved]
  - Nephrolithiasis [Recovered/Resolved]
  - Sensitivity to weather change [Recovered/Resolved]
  - Back pain [Recovered/Resolved]
  - Dysphagia [Recovered/Resolved]
  - Nasopharyngitis [Recovered/Resolved]
  - Asthma [Recovered/Resolved]
  - Flank pain [Recovered/Resolved]
  - Dyspnoea [Recovered/Resolved]
  - Forced expiratory volume decreased [Recovered/Resolved]
  - Rhinorrhoea [Recovered/Resolved]
  - Wheezing [Recovered/Resolved]
  - Obstructive airways disorder [Recovered/Resolved]
